FAERS Safety Report 22122198 (Version 2)
Quarter: 2023Q2

REPORT INFORMATION
  Report Type: Spontaneous
  Country: SA (occurrence: SA)
  Receive Date: 20230321
  Receipt Date: 20230407
  Transmission Date: 20230722
  Serious: Yes (Other)
  Sender: FDA-Public Use
  Company Number: SA-BAUSCHBL-2023BNL001936

PATIENT
  Age: 19 Year
  Sex: Female

DRUGS (6)
  1. PREDNISOLONE ACETATE [Suspect]
     Active Substance: PREDNISOLONE ACETATE
     Indication: Postoperative care
     Route: 065
  2. ARTIFICIAL TEARS (GLYCERIN\PROPYLENE GLYCOL) [Suspect]
     Active Substance: GLYCERIN\PROPYLENE GLYCOL
     Indication: Postoperative care
     Dosage: AS REQUIRED
     Route: 065
  3. CYCLOPENTOLATE [Suspect]
     Active Substance: CYCLOPENTOLATE
     Indication: Postoperative care
     Dosage: EVERY 8 HOURS
     Route: 065
  4. MOXIFLOXACIN HYDROCHLORIDE [Suspect]
     Active Substance: MOXIFLOXACIN HYDROCHLORIDE
     Indication: Postoperative care
     Route: 061
  5. BENOXINATE [Concomitant]
     Active Substance: BENOXINATE
     Indication: Local anaesthesia
  6. RIBOFLAVIN [Concomitant]
     Active Substance: RIBOFLAVIN
     Indication: Corneal cross linking

REACTIONS (1)
  - Treatment noncompliance [Unknown]
